FAERS Safety Report 19988034 (Version 3)
Quarter: 2022Q1

REPORT INFORMATION
  Report Type: Report from Study
  Country: US (occurrence: None)
  Receive Date: 20211023
  Receipt Date: 20220228
  Transmission Date: 20220423
  Serious: Yes (Hospitalization, Other)
  Sender: FDA-Public Use
  Company Number: US-ROCHE-2934982

PATIENT
  Age: 32 Year
  Sex: Female
  Weight: 62.4 kg

DRUGS (2)
  1. ATEZOLIZUMAB [Suspect]
     Active Substance: ATEZOLIZUMAB
     Indication: Clear cell sarcoma of soft tissue
     Dosage: ON DAY 1, CYCLE REPEAT IN 21 DAYS, 27/APR/2021 LAST ADMINISTRATION DOSE
     Route: 041
     Dates: start: 20210427
  2. METHYLPREDNISOLONE [Concomitant]
     Active Substance: METHYLPREDNISOLONE

REACTIONS (6)
  - Systemic immune activation [Not Recovered/Not Resolved]
  - Pyrexia [Recovered/Resolved]
  - Alanine aminotransferase increased [Not Recovered/Not Resolved]
  - Blood alkaline phosphatase increased [Not Recovered/Not Resolved]
  - Aspartate aminotransferase increased [Not Recovered/Not Resolved]
  - Anaemia [Unknown]

NARRATIVE: CASE EVENT DATE: 20210503
